FAERS Safety Report 18781296 (Version 1)
Quarter: 2021Q1

REPORT INFORMATION
  Report Type: Spontaneous
  Country: US (occurrence: US)
  Receive Date: 20210124
  Receipt Date: 20210124
  Transmission Date: 20210419
  Serious: Yes (Other)
  Sender: FDA-Public Use
  Company Number: None

PATIENT
  Age: 30 Year
  Sex: Female
  Weight: 67.5 kg

DRUGS (2)
  1. STIMATE [Suspect]
     Active Substance: DESMOPRESSIN ACETATE
     Indication: BLOOD DISORDER
     Dosage: ?          QUANTITY:1 SPRAY(S);OTHER ROUTE:1 SPRAY EACH NOSTRIL?
     Route: 045
     Dates: start: 20200626, end: 20200626
  2. MULTI VITAMINS [Concomitant]
     Active Substance: VITAMINS

REACTIONS (4)
  - Vision blurred [None]
  - Migraine [None]
  - Vomiting [None]
  - Dizziness [None]

NARRATIVE: CASE EVENT DATE: 20200626
